FAERS Safety Report 18726111 (Version 1)
Quarter: 2021Q1

REPORT INFORMATION
  Report Type: Spontaneous
  Country: FR (occurrence: FR)
  Receive Date: 20210111
  Receipt Date: 20210111
  Transmission Date: 20210419
  Serious: Yes (Other)
  Sender: FDA-Public Use
  Company Number: FR-TEVA-2021-FR-1866050

PATIENT
  Age: 29 Year
  Sex: Female
  Weight: 48 kg

DRUGS (2)
  1. FLUOXETINE [Suspect]
     Active Substance: FLUOXETINE HYDROCHLORIDE
     Indication: EATING DISORDER
     Dosage: 60 MG
     Route: 048
     Dates: start: 202002, end: 20200926
  2. NALTREXONE (CHLORHYDRATE DE) [Suspect]
     Active Substance: NALTREXONE
     Indication: EATING DISORDER
     Dosage: 300 MG
     Route: 048
     Dates: start: 20200611, end: 20200922

REACTIONS (1)
  - Hepatocellular injury [Recovered/Resolved]

NARRATIVE: CASE EVENT DATE: 20200907
